FAERS Safety Report 4283756-0 (Version None)
Quarter: 2004Q1

REPORT INFORMATION
  Report Type: 
  Country: None (occurrence: None)
  Receive Date: 20040130
  Receipt Date: 20040130
  Transmission Date: 20041129
  Serious: Yes (Life-Threatening)
  Sender: FDA-Public Use
  Company Number: None

PATIENT
  Age: 65 Year
  Sex: Female
  Weight: 108 kg

DRUGS (10)
  1. COUMADIN [Suspect]
     Indication: THROMBOSIS PROPHYLAXIS
     Dosage: 5 MG DIALY ORAL
     Route: 048
     Dates: start: 20031013, end: 20031019
  2. COZAAR [Concomitant]
  3. METOPROLOL [Concomitant]
  4. NAPROSYN [Concomitant]
  5. FUROSEMIDE [Concomitant]
  6. GLUCOSAMIDE [Concomitant]
  7. CHRONDROITIN [Concomitant]
  8. CITRACAL WITH VITAMIN D [Concomitant]
  9. LOVENOX [Concomitant]
  10. METRONIDAZOLE [Concomitant]

REACTIONS (4)
  - COAGULOPATHY [None]
  - DEEP VEIN THROMBOSIS [None]
  - DRUG EFFECT DECREASED [None]
  - PULMONARY EMBOLISM [None]
